FAERS Safety Report 11476344 (Version 1)
Quarter: 2015Q3

REPORT INFORMATION
  Report Type: Spontaneous
  Country: US (occurrence: US)
  Receive Date: 20150909
  Receipt Date: 20150909
  Transmission Date: 20151125
  Serious: No
  Sender: FDA-Public Use
  Company Number: US-JAZZ-2014-US-009530

PATIENT
  Age: 46 Year
  Sex: Female
  Weight: 99.77 kg

DRUGS (3)
  1. XYREM [Suspect]
     Active Substance: SODIUM OXYBATE
     Indication: FIBROMYALGIA
     Dosage: 4 G, BID
     Route: 048
     Dates: start: 200409, end: 2005
  2. XYREM [Suspect]
     Active Substance: SODIUM OXYBATE
     Dosage: 4.5 G, BID
     Dates: start: 200501
  3. XYREM [Suspect]
     Active Substance: SODIUM OXYBATE
     Indication: NARCOLEPSY
     Dosage: 0.5 G, BID
     Route: 048
     Dates: start: 200409, end: 2004

REACTIONS (2)
  - Drug dose omission [Unknown]
  - Crying [Not Recovered/Not Resolved]

NARRATIVE: CASE EVENT DATE: 20140729
